FAERS Safety Report 16667760 (Version 1)
Quarter: 2019Q3

REPORT INFORMATION
  Report Type: Spontaneous
  Country: GB (occurrence: GB)
  Receive Date: 20190805
  Receipt Date: 20190805
  Transmission Date: 20191004
  Serious: Yes (Other)
  Sender: FDA-Public Use
  Company Number: GB-NOVOPROD-675368

PATIENT
  Age: 52 Year
  Sex: Female
  Weight: 72 kg

DRUGS (3)
  1. VAGIFEM [Suspect]
     Active Substance: ESTRADIOL
     Indication: HORMONE REPLACEMENT THERAPY
     Dosage: 10 ?G, QD
     Route: 067
     Dates: start: 20190610, end: 20190612
  2. LEVOTHYROXINE. [Concomitant]
     Active Substance: LEVOTHYROXINE
     Indication: PRODUCT USED FOR UNKNOWN INDICATION
     Dosage: 75 ?G, QD
     Route: 065
  3. CEFALEXIN [Concomitant]
     Active Substance: CEPHALEXIN
     Indication: PRODUCT USED FOR UNKNOWN INDICATION
     Dosage: 500 ?G
     Route: 065

REACTIONS (3)
  - Abdominal pain upper [Recovered/Resolved]
  - Chills [Recovered/Resolved]
  - Influenza like illness [Recovered/Resolved]

NARRATIVE: CASE EVENT DATE: 20190610
